FAERS Safety Report 4411978-4 (Version None)
Quarter: 2004Q3

REPORT INFORMATION
  Report Type: 
  Country: None (occurrence: None)
  Receive Date: 20040730
  Receipt Date: 20040727
  Transmission Date: 20050211
  Serious: Yes (Other)
  Sender: FDA-Public Use
  Company Number: IE-ROCHE-375767

PATIENT
  Sex: Female

DRUGS (2)
  1. XENICAL [Suspect]
     Indication: OBESITY
     Route: 048
     Dates: start: 20031215, end: 20040720
  2. UNKNOWN MEDICATION NOS [Concomitant]

REACTIONS (2)
  - SKIN LESION [None]
  - SKIN ULCER [None]
